FAERS Safety Report 7930029-8 (Version None)
Quarter: 2011Q4

REPORT INFORMATION
  Report Type: 
  Country: None (occurrence: None)
  Receive Date: 20111121
  Receipt Date: 20111111
  Transmission Date: 20120403
  Serious: Yes (Hospitalization)
  Sender: FDA-Public Use
  Company Number: AU-ASTELLAS-2011JP008324

PATIENT
  Age: 55 Year
  Sex: Male

DRUGS (1)
  1. TACROLIMUS [Suspect]
     Dosage: UNK
     Route: 065

REACTIONS (6)
  - AORTIC ANEURYSM [None]
  - ABSCESS FUNGAL [None]
  - FUNGAL INFECTION [None]
  - OSTEOMYELITIS FUNGAL [None]
  - MYCOTIC ANEURYSM [None]
  - GRANULOMA SKIN [None]
